FAERS Safety Report 7072036-6 (Version None)
Quarter: 2010Q4

REPORT INFORMATION
  Report Type: 
  Country: None (occurrence: None)
  Receive Date: 20101029
  Receipt Date: 20101025
  Transmission Date: 20110411
  Serious: Yes (Death, Hospitalization, Other)
  Sender: FDA-Public Use
  Company Number: PHHO2010GB15694

PATIENT
  Sex: Female

DRUGS (15)
  1. AFINITOR [Suspect]
     Indication: ACUTE MYELOID LEUKAEMIA
     Dosage: UNK
     Route: 048
     Dates: start: 20100808, end: 20100904
  2. ARA-C [Concomitant]
  3. MYLOTARG [Concomitant]
  4. ETOPOSIDE [Concomitant]
  5. DAUNORUBICIN HCL [Concomitant]
  6. AMIKACIN [Concomitant]
  7. ACYCLOVIR [Concomitant]
  8. OMEPRAZOLE [Concomitant]
  9. NORETHISTERONE [Concomitant]
  10. TRANEXAMIC ACID [Concomitant]
  11. VENLAFAXINE [Concomitant]
  12. ITRACONAZOLE [Concomitant]
  13. TEICOPLANIN [Concomitant]
  14. METRONIDAZOLE [Concomitant]
  15. AZTREONAM [Concomitant]

REACTIONS (8)
  - ALANINE AMINOTRANSFERASE ABNORMAL [None]
  - ASPARTATE AMINOTRANSFERASE ABNORMAL [None]
  - BRAIN STEM HAEMORRHAGE [None]
  - CEREBELLAR HAEMORRHAGE [None]
  - COAGULOPATHY [None]
  - METABOLIC FUNCTION TEST ABNORMAL [None]
  - PANCYTOPENIA [None]
  - SEPTIC SHOCK [None]
